FAERS Safety Report 4492502-7 (Version None)
Quarter: 2004Q4

REPORT INFORMATION
  Report Type: 
  Country: None (occurrence: None)
  Receive Date: 20041029
  Receipt Date: 20041019
  Transmission Date: 20050328
  Serious: Yes (Death)
  Sender: FDA-Public Use
  Company Number: 2004EU001907

PATIENT
  Age: 35 Year
  Sex: Male

DRUGS (5)
  1. FK506 (TACROLIMUS) FORMULATION UNKNOWN [Suspect]
     Indication: LIVER TRANSPLANT
  2. LAMIVUDINE (LAMIVUDINE) [Concomitant]
  3. ZIDOVUDINE [Concomitant]
  4. INDINAVIR (INDINAVIR) [Concomitant]
  5. PREDNISOLONE [Concomitant]

REACTIONS (4)
  - DISEASE RECURRENCE [None]
  - HEPATITIS C VIRUS [None]
  - SEPSIS [None]
  - TRANSPLANT FAILURE [None]
